FAERS Safety Report 9407270 (Version 1)
Quarter: 2013Q3

REPORT INFORMATION
  Report Type: Spontaneous
  Country: US (occurrence: US)
  Receive Date: 20130718
  Receipt Date: 20130718
  Transmission Date: 20140515
  Serious: Yes (Other)
  Sender: FDA-Public Use
  Company Number: US-BANPHARM-20131499

PATIENT
  Age: 11 Year
  Sex: Female

DRUGS (1)
  1. ETHOSUXIMIDE [Suspect]
     Dosage: 375 MG, BID,
     Dates: start: 2006

REACTIONS (2)
  - Benign rolandic epilepsy [Unknown]
  - Central nervous system lesion [Unknown]
